FAERS Safety Report 7650900-4 (Version None)
Quarter: 2011Q3

REPORT INFORMATION
  Report Type: 
  Country: None (occurrence: None)
  Receive Date: 20110802
  Receipt Date: 20110718
  Transmission Date: 20111222
  Serious: Yes (Other)
  Sender: FDA-Public Use
  Company Number: GB-WATSON-2011-11058

PATIENT
  Age: 45 Year
  Sex: Female

DRUGS (2)
  1. RAMIPRIL [Suspect]
     Indication: CARDIAC FAILURE
     Dosage: UNK
     Route: 065
     Dates: start: 20110301, end: 20110614
  2. BISOPROLOL FUMARATE [Concomitant]
     Indication: PRODUCT USED FOR UNKNOWN INDICATION
     Route: 065

REACTIONS (8)
  - COUGH [None]
  - SKIN DISCOLOURATION [None]
  - ASTHENIA [None]
  - DIZZINESS [None]
  - FATIGUE [None]
  - ALOPECIA [None]
  - RHINORRHOEA [None]
  - FEELING ABNORMAL [None]
